FAERS Safety Report 10150244 (Version 1)
Quarter: 2014Q2

REPORT INFORMATION
  Report Type: Report from Study
  Country: CA (occurrence: CA)
  Receive Date: 20140502
  Receipt Date: 20140502
  Transmission Date: 20141212
  Serious: Yes (Other)
  Sender: FDA-Public Use
  Company Number: CA-JNJFOC-20140419975

PATIENT
  Age: 60 Year
  Sex: Female
  Weight: 88.5 kg

DRUGS (2)
  1. REMICADE [Suspect]
     Indication: COLITIS ULCERATIVE
     Route: 042
     Dates: start: 20140422
  2. HYDROCORTISONE ENEMA [Concomitant]
     Route: 065

REACTIONS (3)
  - Peripheral swelling [Recovering/Resolving]
  - Joint stiffness [Not Recovered/Not Resolved]
  - Fatigue [Not Recovered/Not Resolved]
